FAERS Safety Report 5034690-X (Version None)
Quarter: 2006Q2

REPORT INFORMATION
  Report Type: 
  Country: None (occurrence: None)
  Receive Date: 20060621
  Receipt Date: 20060606
  Transmission Date: 20061013
  Serious: Yes (Hospitalization)
  Sender: FDA-Public Use
  Company Number: 2006S1005280

PATIENT
  Age: 67 Year
  Sex: Male
  Weight: 113.3993 kg

DRUGS (14)
  1. OXALIPLATIN SOLUTION (85MG/M^2) [Suspect]
     Indication: ENDOCRINE PANCREATIC DISORDER
     Dosage: 200 MG, QOW, INTRA
     Dates: start: 20060425, end: 20060425
  2. OXALIPLATIN SOLUTION (85MG/M^2) [Suspect]
     Indication: NEOPLASM
     Dosage: 200 MG, QOW, INTRA
     Dates: start: 20060425, end: 20060425
  3. BEVACUZUMAB SOLUTION (5MG/KG) [Suspect]
     Indication: ENDOCRINE PANCREATIC DISORDER
     Dosage: 570 MG;QOW;INTRA
     Dates: start: 20060425, end: 20060425
  4. BEVACUZUMAB SOLUTION (5MG/KG) [Suspect]
     Indication: NEOPLASM
     Dosage: 570 MG;QOW;INTRA
     Dates: start: 20060425, end: 20060425
  5. FLUOROURACIL [Suspect]
     Indication: ENDOCRINE PANCREATIC DISORDER
     Dosage: SEE IMAGE
     Dates: start: 20060425, end: 20060425
  6. FLUOROURACIL [Suspect]
     Indication: NEOPLASM
     Dosage: SEE IMAGE
     Dates: start: 20060425, end: 20060425
  7. LEUCOVORIN CALCIUM [Suspect]
     Indication: ENDOCRINE PANCREATIC DISORDER
     Dosage: 475 MG;QOW;INTRA
     Dates: start: 20060425, end: 20060425
  8. LEUCOVORIN CALCIUM [Suspect]
     Indication: NEOPLASM
     Dosage: 475 MG;QOW;INTRA
     Dates: start: 20060425, end: 20060425
  9. DEXAMETHASONE [Suspect]
     Dosage: 20 MG;QOW; INTRA
     Dates: start: 20060411, end: 20060425
  10. LORAZEPAM [Suspect]
     Dosage: 1 MG;QOW;ORAL
     Route: 048
     Dates: start: 20060411, end: 20060425
  11. GRANISETRON  HCL [Suspect]
     Dosage: 1200 UG;QOW;INTRA
     Dates: start: 20060411, end: 20060425
  12. PANTOPRAZOLE [Concomitant]
  13. OCTREOTIDE ACETATE [Concomitant]
  14. GLUCOSE INJECTION [Concomitant]

REACTIONS (5)
  - ASPARTATE AMINOTRANSFERASE INCREASED [None]
  - CHILLS [None]
  - DEHYDRATION [None]
  - FATIGUE [None]
  - VOMITING [None]
